FAERS Safety Report 8947487 (Version 2)
Quarter: 2012Q4

REPORT INFORMATION
  Report Type: 
  Country: US (occurrence: US)
  Receive Date: 20121205
  Receipt Date: 20121227
  Transmission Date: 20130627
  Serious: No
  Sender: FDA-Public Use
  Company Number: US-PFIZER INC-2012301946

PATIENT
  Age: 67 Year
  Sex: Female
  Weight: 49.89 kg

DRUGS (1)
  1. AZITHROMYCIN [Suspect]
     Indication: COUGH
     Dosage: UNK
     Dates: start: 2011

REACTIONS (1)
  - Drug ineffective for unapproved indication [Unknown]
